FAERS Safety Report 21182533 (Version 4)
Quarter: 2023Q2

REPORT INFORMATION
  Report Type: Spontaneous
  Country: US (occurrence: US)
  Receive Date: 20220808
  Receipt Date: 20230524
  Transmission Date: 20230721
  Serious: No
  Sender: FDA-Public Use
  Company Number: US-SA-SAC20220804002145

PATIENT
  Age: 80 Year
  Sex: Female

DRUGS (2)
  1. DUPIXENT [Suspect]
     Active Substance: DUPILUMAB
     Indication: Dermatitis atopic
     Dosage: 300 MG, QOW
     Route: 058
     Dates: start: 202111
  2. DUPIXENT [Suspect]
     Active Substance: DUPILUMAB
     Dosage: 300 MG, QOW
     Route: 058
     Dates: start: 202303

REACTIONS (10)
  - Erythema of eyelid [Unknown]
  - Ocular hyperaemia [Unknown]
  - Swelling of eyelid [Unknown]
  - Eye swelling [Unknown]
  - Vision blurred [Not Recovered/Not Resolved]
  - Eyelids pruritus [Unknown]
  - Eye pruritus [Unknown]
  - Eye inflammation [Unknown]
  - Blepharitis [Unknown]
  - Product dose omission in error [Unknown]
